FAERS Safety Report 17734259 (Version 1)
Quarter: 2020Q2

REPORT INFORMATION
  Report Type: Spontaneous
  Country: US (occurrence: US)
  Receive Date: 20200501
  Receipt Date: 20200501
  Transmission Date: 20200714
  Serious: Yes (Hospitalization, Other)
  Sender: FDA-Public Use
  Company Number: US-ALLERGAN-2017047US

PATIENT
  Sex: Female

DRUGS (3)
  1. NORCO [Suspect]
     Active Substance: ACETAMINOPHEN\HYDROCODONE BITARTRATE
     Indication: PRODUCT USED FOR UNKNOWN INDICATION
     Dosage: UNK
     Route: 065
  2. METHADONE [Suspect]
     Active Substance: METHADONE HYDROCHLORIDE
     Indication: PRODUCT USED FOR UNKNOWN INDICATION
     Route: 065
  3. MORPHINE [Suspect]
     Active Substance: MORPHINE
     Indication: PRODUCT USED FOR UNKNOWN INDICATION
     Route: 065

REACTIONS (17)
  - Drug dependence [Unknown]
  - Mass [Unknown]
  - Impaired quality of life [Unknown]
  - Apoptosis [Unknown]
  - Overdose [Unknown]
  - Mental disorder [Unknown]
  - Dry mouth [Unknown]
  - Tooth loss [Unknown]
  - Gait inability [Unknown]
  - Urinary incontinence [Unknown]
  - Anal incontinence [Unknown]
  - Mental impairment [Unknown]
  - Irritable bowel syndrome [Unknown]
  - Coma [Unknown]
  - Motor dysfunction [Unknown]
  - Complex regional pain syndrome [Unknown]
  - Pain [Unknown]
